FAERS Safety Report 23404694 (Version 2)
Quarter: 2024Q1

REPORT INFORMATION
  Report Type: Spontaneous
  Country: CN (occurrence: CN)
  Receive Date: 20240116
  Receipt Date: 20240122
  Transmission Date: 20240409
  Serious: Yes (Hospitalization)
  Sender: FDA-Public Use
  Company Number: CN-002147023-NVSC2024CN003050

PATIENT
  Age: 55 Year
  Sex: Male
  Weight: 75 kg

DRUGS (2)
  1. COSENTYX [Suspect]
     Active Substance: SECUKINUMAB
     Indication: Symptomatic treatment
     Dosage: 75 MG, QW
     Route: 048
     Dates: start: 20231003, end: 20231024
  2. COSENTYX [Suspect]
     Active Substance: SECUKINUMAB
     Indication: Psoriasis

REACTIONS (16)
  - Skin infection [Recovering/Resolving]
  - Osteomyelitis [Recovering/Resolving]
  - Rash [Recovering/Resolving]
  - Erysipelas [Unknown]
  - Swelling [Unknown]
  - Erythema [Unknown]
  - Bone marrow oedema [Unknown]
  - Pain in extremity [Unknown]
  - Erythema [Unknown]
  - Papule [Unknown]
  - Pruritus [Unknown]
  - Peripheral swelling [Unknown]
  - Skin discolouration [Unknown]
  - Mobility decreased [Unknown]
  - Skin mass [Unknown]
  - Skin temperature [Unknown]

NARRATIVE: CASE EVENT DATE: 20231024
